FAERS Safety Report 5972167-5 (Version None)
Quarter: 2008Q4

REPORT INFORMATION
  Report Type: 
  Country: None (occurrence: None)
  Receive Date: 20081201
  Receipt Date: 20071004
  Transmission Date: 20090506
  Serious: No
  Sender: FDA-Public Use
  Company Number: US-TEVA-162013USA

PATIENT
  Sex: Female

DRUGS (1)
  1. SALBUTAMOL SULFATE INHALATION, 0.09 MG [Suspect]
     Indication: ASTHMA
     Route: 055
     Dates: start: 20070101, end: 20070101

REACTIONS (7)
  - ASTHMA [None]
  - DRUG INEFFECTIVE [None]
  - DRUG INTOLERANCE [None]
  - HYPERSENSITIVITY [None]
  - LUNG DISORDER [None]
  - OEDEMA [None]
  - PEAK EXPIRATORY FLOW RATE DECREASED [None]
